FAERS Safety Report 5248016-X (Version None)
Quarter: 2007Q1

REPORT INFORMATION
  Report Type: 
  Country: None (occurrence: None)
  Receive Date: 20070227
  Receipt Date: 20070215
  Transmission Date: 20070707
  Serious: Yes (Other)
  Sender: FDA-Public Use
  Company Number: 2007UW02751

PATIENT
  Age: 27747 Day
  Sex: Female
  Weight: 68.6 kg

DRUGS (8)
  1. NOLVADEX [Suspect]
     Route: 048
     Dates: start: 19980109, end: 20030109
  2. RISEDRONATE SODIUM [Concomitant]
     Indication: OSTEOPOROSIS
     Route: 048
  3. LATANOPROST [Concomitant]
     Indication: GLAUCOMA
     Route: 047
  4. NORVASC [Concomitant]
     Indication: HYPERTENSION
     Route: 048
  5. METOPROLOL SUCCINATE [Concomitant]
     Indication: HYPERTENSION
     Route: 048
  6. PRAVASTATIN [Concomitant]
     Indication: BLOOD CHOLESTEROL INCREASED
     Route: 048
  7. COUMADIN [Concomitant]
     Indication: ATRIAL FIBRILLATION
     Route: 048
  8. COUMADIN [Concomitant]
     Indication: ANTICOAGULANT THERAPY
     Route: 048

REACTIONS (1)
  - PLEURAL EFFUSION [None]
